FAERS Safety Report 5367231-8 (Version None)
Quarter: 2007Q2

REPORT INFORMATION
  Report Type: 
  Country: None (occurrence: None)
  Receive Date: 20070622
  Receipt Date: 20070612
  Transmission Date: 20071010
  Serious: Yes (Other)
  Sender: FDA-Public Use
  Company Number: PHBS2007BR09837

PATIENT
  Age: 26 Year
  Sex: Male
  Weight: 83 kg

DRUGS (4)
  1. CLOZAPINE [Suspect]
     Indication: HALLUCINATION
     Dosage: 300 MG/DAY
     Route: 048
  2. CLOZAPINE [Suspect]
     Dosage: 50 MG/DAY
     Route: 048
  3. CLOZAPINE [Suspect]
     Dosage: 225 MG/DAY
     Route: 048
  4. RIVOTRIL [Suspect]
     Indication: DELIRIUM
     Dosage: 2 MG/DAY
     Route: 048

REACTIONS (8)
  - ANXIETY [None]
  - DRUG INTERACTION [None]
  - DRUG WITHDRAWAL SYNDROME [None]
  - HICCUPS [None]
  - NASOPHARYNGITIS [None]
  - PSYCHOTIC DISORDER [None]
  - SALIVARY HYPERSECRETION [None]
  - SOMNOLENCE [None]
